FAERS Safety Report 8619977-3 (Version None)
Quarter: 2012Q3

REPORT INFORMATION
  Report Type: 
  Country: None (occurrence: None)
  Receive Date: 20120824
  Receipt Date: 20120821
  Transmission Date: 20120928
  Serious: Yes (Other)
  Sender: FDA-Public Use
  Company Number: US-BAYER-2012-087500

PATIENT
  Age: 59 Year
  Sex: Female
  Weight: 47 kg

DRUGS (3)
  1. SOY ISOFLAVONES [Concomitant]
  2. CALCIUM CARBONATE [Concomitant]
  3. ALEVE (CAPLET) [Suspect]
     Indication: BACK PAIN
     Dosage: 2 UNK, UNK
     Route: 048
     Dates: start: 20010101, end: 20120814

REACTIONS (1)
  - HAEMATOCHEZIA [None]
